FAERS Safety Report 24779712 (Version 1)
Quarter: 2024Q4

REPORT INFORMATION
  Report Type: Spontaneous
  Country: SI (occurrence: SI)
  Receive Date: 20241226
  Receipt Date: 20241226
  Transmission Date: 20250115
  Serious: Yes (Other)
  Sender: BAUSCH AND LOMB
  Company Number: SI-BAUSCH-BL-2024-018943

PATIENT
  Age: 41 Year
  Sex: Male

DRUGS (4)
  1. WELLBUTRIN XL [Suspect]
     Active Substance: BUPROPION HYDROCHLORIDE
     Indication: Drug abuse
     Dosage: ROUTE: INTRANASAL, QD; 1X/DAY 7 TABLETS (2100 MG),
     Route: 065
     Dates: start: 20241201, end: 20241201
  2. QUETIAPINE FUMARATE [Concomitant]
     Active Substance: QUETIAPINE FUMARATE
     Indication: Product used for unknown indication
  3. LACIDIPINE [Concomitant]
     Active Substance: LACIDIPINE
     Indication: Product used for unknown indication
  4. LYRICA [Concomitant]
     Active Substance: PREGABALIN
     Indication: Product used for unknown indication

REACTIONS (5)
  - Hyperhidrosis [Recovering/Resolving]
  - Epilepsy [Recovering/Resolving]
  - Tremor [Recovering/Resolving]
  - Drug abuse [Recovering/Resolving]
  - Incorrect route of product administration [Recovering/Resolving]

NARRATIVE: CASE EVENT DATE: 20241201
